FAERS Safety Report 18587768 (Version 1)
Quarter: 2020Q4

REPORT INFORMATION
  Report Type: Spontaneous
  Country: US (occurrence: US)
  Receive Date: 20201207
  Receipt Date: 20201207
  Transmission Date: 20210114
  Serious: No
  Sender: FDA-Public Use
  Company Number: US-NOVOPROD-726696

PATIENT
  Age: 72 Year
  Sex: Female

DRUGS (1)
  1. NOVOLIN 70/30 [Suspect]
     Active Substance: INSULIN HUMAN
     Indication: TYPE 2 DIABETES MELLITUS
     Dosage: 52 IU, BID
     Route: 058

REACTIONS (9)
  - Injection site haemorrhage [Not Recovered/Not Resolved]
  - Spider vein [Not Recovered/Not Resolved]
  - Contusion [Unknown]
  - Injection site discolouration [Unknown]
  - Blood glucose increased [Recovered/Resolved]
  - Device issue [Unknown]
  - Urinary tract infection [Recovered/Resolved]
  - Osteoarthritis [Unknown]
  - Injury associated with device [Unknown]

NARRATIVE: CASE EVENT DATE: 2019
